FAERS Safety Report 7416663-2 (Version None)
Quarter: 2011Q2

REPORT INFORMATION
  Report Type: 
  Country: None (occurrence: None)
  Receive Date: 20110415
  Receipt Date: 20110405
  Transmission Date: 20111010
  Serious: No
  Sender: FDA-Public Use
  Company Number: US-BIOGENIDEC-2011BI012751

PATIENT
  Sex: Female

DRUGS (1)
  1. TYSABRI [Suspect]
     Indication: MULTIPLE SCLEROSIS
     Route: 042
     Dates: start: 20100312

REACTIONS (12)
  - APHASIA [None]
  - STRESS [None]
  - ANXIETY [None]
  - HYPOAESTHESIA [None]
  - BACK PAIN [None]
  - HEADACHE [None]
  - MENTAL IMPAIRMENT [None]
  - PANIC ATTACK [None]
  - HEMICEPHALALGIA [None]
  - COGNITIVE DISORDER [None]
  - FATIGUE [None]
  - DIZZINESS [None]
